FAERS Safety Report 20469754 (Version 1)
Quarter: 2022Q1

REPORT INFORMATION
  Report Type: Spontaneous
  Country: US (occurrence: US)
  Receive Date: 20220214
  Receipt Date: 20220214
  Transmission Date: 20220423
  Serious: No
  Sender: FDA-Public Use
  Company Number: US-MYLANLABS-2022M1003006

PATIENT
  Sex: Female

DRUGS (2)
  1. ESTRADIOL TRANSDERMAL SYSTEM [Suspect]
     Active Substance: ESTRADIOL
     Indication: Menopause
     Dosage: 0.025 MILLIGRAM, QD (CHANGED ONCE WEEKLY)
     Route: 062
     Dates: start: 20220101
  2. PROGESTERONE [Concomitant]
     Active Substance: PROGESTERONE
     Indication: Oestrogen therapy
     Dosage: 200 MILLIGRAM, Q2W

REACTIONS (2)
  - Product quality issue [Unknown]
  - Application site pruritus [Unknown]
